FAERS Safety Report 20740639 (Version 1)
Quarter: 2022Q2

REPORT INFORMATION
  Report Type: Spontaneous
  Country: IT (occurrence: IT)
  Receive Date: 20220422
  Receipt Date: 20220422
  Transmission Date: 20220721
  Serious: Yes (Hospitalization)
  Sender: FDA-Public Use
  Company Number: IT-MYLANLABS-2022M1029909

PATIENT
  Age: 22 Year
  Sex: Male

DRUGS (2)
  1. MESALAMINE [Suspect]
     Active Substance: MESALAMINE
     Indication: Colitis ulcerative
     Dosage: 1600 MILLIGRAM, BID
     Route: 065
  2. PREDNISONE [Concomitant]
     Active Substance: PREDNISONE
     Indication: Colitis ulcerative
     Dosage: 40 MILLIGRAM, QD
     Route: 042

REACTIONS (3)
  - Myocarditis [Recovered/Resolved]
  - Hepatotoxicity [Recovered/Resolved]
  - Pancreatic toxicity [Recovered/Resolved]
